FAERS Safety Report 15283546 (Version 3)
Quarter: 2019Q4

REPORT INFORMATION
  Report Type: Report from Study
  Country: US (occurrence: US)
  Receive Date: 20180816
  Receipt Date: 20191101
  Transmission Date: 20200122
  Serious: Yes (Other)
  Sender: FDA-Public Use
  Company Number: US-BRISTOL-MYERS SQUIBB COMPANY-BMS-2018-074722

PATIENT
  Age: 80 Year
  Sex: Female
  Weight: 57.15 kg

DRUGS (2)
  1. ABATACEPT [Suspect]
     Active Substance: ABATACEPT
     Indication: RHEUMATOID ARTHRITIS
     Dosage: 750 MG, Q4WK
     Route: 042
     Dates: start: 20110308
  2. TRAMADOL. [Concomitant]
     Active Substance: TRAMADOL
     Indication: ANALGESIC THERAPY
     Route: 065

REACTIONS (4)
  - Transient ischaemic attack [Recovered/Resolved]
  - Psoriasis [Unknown]
  - Cerebrovascular accident [Recovered/Resolved]
  - Peptic ulcer [Unknown]

NARRATIVE: CASE EVENT DATE: 201307
